FAERS Safety Report 24949867 (Version 2)
Quarter: 2025Q1

REPORT INFORMATION
  Report Type: Spontaneous
  Country: DE (occurrence: DE)
  Receive Date: 20250210
  Receipt Date: 20250221
  Transmission Date: 20250408
  Serious: No
  Sender: SANDOZ
  Company Number: DE-SANDOZ-SDZ2025DE007080

PATIENT
  Sex: Male

DRUGS (1)
  1. ALBUTEROL SULFATE [Suspect]
     Active Substance: ALBUTEROL SULFATE
     Indication: Product used for unknown indication
     Route: 055

REACTIONS (3)
  - Drug dose omission by device [Unknown]
  - Product delivery mechanism issue [Unknown]
  - Device mechanical issue [Unknown]
